FAERS Safety Report 6569761-X (Version None)
Quarter: 2010Q1

REPORT INFORMATION
  Report Type: 
  Country: None (occurrence: None)
  Receive Date: 20100204
  Receipt Date: 20100125
  Transmission Date: 20100710
  Serious: Yes (Hospitalization)
  Sender: FDA-Public Use
  Company Number: US-WYE-H10850209

PATIENT
  Sex: Male
  Weight: 95.34 kg

DRUGS (12)
  1. PRISTIQ [Suspect]
     Indication: ANXIETY
     Route: 048
     Dates: start: 20090701, end: 20090801
  2. PRISTIQ [Suspect]
     Indication: DEPRESSION
  3. SYNTHROID [Concomitant]
     Dosage: UNKNOWN
  4. JANUVIA [Concomitant]
     Dosage: UNKNOWN
  5. METFORMIN HCL [Concomitant]
     Dosage: UNKNOWN
  6. SINGULAIR [Concomitant]
     Dosage: UNKNOWN
  7. TESTOSTERONE PROPIONATE [Concomitant]
     Dosage: UNKNOWN
     Route: 030
  8. ABILIFY [Suspect]
     Dosage: UNKNOWN
  9. AMBIEN [Concomitant]
     Dosage: UNKNOWN
  10. PROTONIX [Concomitant]
     Dosage: UNKNOWN
  11. LISINOPRIL [Concomitant]
     Dosage: UNKNOWN
  12. TRICOR [Concomitant]
     Dosage: UNKNOWN

REACTIONS (5)
  - AKATHISIA [None]
  - CONDITION AGGRAVATED [None]
  - DEPRESSION [None]
  - MIGRAINE [None]
  - TACHYPHRENIA [None]
